FAERS Safety Report 17996396 (Version 2)
Quarter: 2021Q1

REPORT INFORMATION
  Report Type: Spontaneous
  Country: CA (occurrence: CA)
  Receive Date: 20200708
  Receipt Date: 20210112
  Transmission Date: 20210419
  Serious: Yes (Life-Threatening, Hospitalization, Other)
  Sender: FDA-Public Use
  Company Number: CA-TEVA-2020-CA-1797227

PATIENT
  Age: 17 Year
  Sex: Female
  Weight: 56 kg

DRUGS (31)
  1. ETOPOSIDE. [Suspect]
     Active Substance: ETOPOSIDE
     Indication: OVARIAN GERM CELL TERATOMA STAGE III
     Dosage: 160 MILLIGRAM DAILY;
     Route: 042
  2. BLEOMYCIN SULPHATE FOR INJECTION USP [Suspect]
     Active Substance: BLEOMYCIN SULFATE
     Route: 042
  3. EMEND [Concomitant]
     Active Substance: APREPITANT
  4. ENOXAPARIN [Concomitant]
     Active Substance: ENOXAPARIN
  5. VANCOMYCIN [Concomitant]
     Active Substance: VANCOMYCIN
  6. CISPLATIN INJECTION [Suspect]
     Active Substance: CISPLATIN
     Indication: OVARIAN GERM CELL TERATOMA STAGE III
     Dosage: 32 MILLIGRAM DAILY;
     Route: 042
  7. FUROSEMIDE. [Concomitant]
     Active Substance: FUROSEMIDE
  8. ONDANSETRON [Concomitant]
     Active Substance: ONDANSETRON
  9. RANITIDINE. [Concomitant]
     Active Substance: RANITIDINE
  10. SULFAMETHOXAZOLE AND TRIMETHOPRIM [Concomitant]
     Active Substance: SULFAMETHOXAZOLE\TRIMETHOPRIM
  11. CLONIDINE. [Concomitant]
     Active Substance: CLONIDINE
  12. DIMENHYDRINATE. [Concomitant]
     Active Substance: DIMENHYDRINATE
  13. KETAMINE (UNKNOWN) [Concomitant]
     Active Substance: KETAMINE
  14. LORAZEPAM. [Concomitant]
     Active Substance: LORAZEPAM
  15. HYDROMORPHONE [Concomitant]
     Active Substance: HYDROMORPHONE
  16. MAGNESIUM [Concomitant]
     Active Substance: MAGNESIUM
  17. METOCLOPRAMIDE. [Concomitant]
     Active Substance: METOCLOPRAMIDE
  18. PANTOPRAZOLE [Concomitant]
     Active Substance: PANTOPRAZOLE
  19. PREGABALIN. [Concomitant]
     Active Substance: PREGABALIN
  20. ACETAMINOPHEN. [Concomitant]
     Active Substance: ACETAMINOPHEN
  21. ALLOPURINOL. [Concomitant]
     Active Substance: ALLOPURINOL
  22. CALCIUM [Concomitant]
     Active Substance: CALCIUM
  23. CETIRIZINE [Concomitant]
     Active Substance: CETIRIZINE HYDROCHLORIDE
  24. NAPROXEN. [Concomitant]
     Active Substance: NAPROXEN
  25. DEXAMETHASONE. [Concomitant]
     Active Substance: DEXAMETHASONE
     Route: 065
  26. NORETHINDRONE. [Concomitant]
     Active Substance: NORETHINDRONE
  27. ZINC. [Concomitant]
     Active Substance: ZINC
  28. CHLORURE DE POTASSIUM H5? TABLETS [Concomitant]
  29. DIPHENHYDRAMINE. [Concomitant]
     Active Substance: DIPHENHYDRAMINE
  30. GRANISETRON [Concomitant]
     Active Substance: GRANISETRON
  31. POLYETHYLENE GLYCOL [Concomitant]
     Active Substance: POLYETHYLENE GLYCOLS

REACTIONS (3)
  - Pancytopenia [Recovered/Resolved]
  - Febrile neutropenia [Recovered/Resolved]
  - Transfusion [Recovered/Resolved]
